FAERS Safety Report 22955269 (Version 3)
Quarter: 2023Q4

REPORT INFORMATION
  Report Type: Spontaneous
  Country: JP (occurrence: JP)
  Receive Date: 20230918
  Receipt Date: 20231206
  Transmission Date: 20240110
  Serious: Yes (Hospitalization)
  Sender: FDA-Public Use
  Company Number: JP-ABBVIE-5409930

PATIENT
  Age: 45 Year
  Sex: Male
  Weight: 66 kg

DRUGS (4)
  1. HUMIRA [Suspect]
     Active Substance: ADALIMUMAB
     Indication: SAPHO syndrome
     Dosage: DRUG STARTED 3 YEAR BEFORE
     Route: 058
     Dates: start: 20191225, end: 20230111
  2. HUMIRA [Suspect]
     Active Substance: ADALIMUMAB
     Indication: Rheumatoid arthritis
  3. ACYCLOVIR [Suspect]
     Active Substance: ACYCLOVIR
     Indication: Myelin oligodendrocyte glycoprotein antibody-associated disease
     Route: 065
     Dates: start: 20230111
  4. METHOTREXATE [Concomitant]
     Active Substance: METHOTREXATE
     Indication: SAPHO syndrome
     Route: 065

REACTIONS (3)
  - Myelin oligodendrocyte glycoprotein antibody-associated disease [Recovering/Resolving]
  - Off label use [Unknown]
  - Toxic encephalopathy [Unknown]

NARRATIVE: CASE EVENT DATE: 20230105
